FAERS Safety Report 10404829 (Version 1)
Quarter: 2014Q3

REPORT INFORMATION
  Report Type: Report from Study
  Country: US (occurrence: US)
  Receive Date: 20140825
  Receipt Date: 20140825
  Transmission Date: 20150326
  Serious: Yes (Other)
  Sender: FDA-Public Use
  Company Number: US-ROCHE-1452054

PATIENT
  Age: 35 Year
  Sex: Female

DRUGS (4)
  1. RITUXAN [Suspect]
     Active Substance: RITUXIMAB
     Indication: GRANULOMATOSIS WITH POLYANGIITIS
     Route: 042
  2. CELLCEPT [Suspect]
     Active Substance: MYCOPHENOLATE MOFETIL\MYCOPHENOLATE MOFETIL HYDROCHLORIDE
     Indication: MICROSCOPIC POLYANGIITIS
  3. RITUXAN [Suspect]
     Active Substance: RITUXIMAB
     Indication: MICROSCOPIC POLYANGIITIS
  4. CELLCEPT [Suspect]
     Active Substance: MYCOPHENOLATE MOFETIL\MYCOPHENOLATE MOFETIL HYDROCHLORIDE
     Indication: GRANULOMATOSIS WITH POLYANGIITIS
     Route: 065

REACTIONS (10)
  - Proteinuria [Unknown]
  - Microscopic polyangiitis [Unknown]
  - Decreased appetite [Unknown]
  - Hearing impaired [Unknown]
  - Antineutrophil cytoplasmic antibody increased [Unknown]
  - Granulomatosis with polyangiitis [Unknown]
  - Blood creatinine increased [Unknown]
  - Ear disorder [Unknown]
  - Glomerulonephritis [Unknown]
  - Haematuria [Unknown]
